FAERS Safety Report 4546414-0 (Version None)
Quarter: 2005Q1

REPORT INFORMATION
  Report Type: 
  Country: None (occurrence: None)
  Receive Date: 20050105
  Receipt Date: 20041221
  Transmission Date: 20050727
  Serious: Yes (Death, Hospitalization)
  Sender: FDA-Public Use
  Company Number: 2004AL000523

PATIENT
  Age: 64 Year
  Sex: Male

DRUGS (6)
  1. ACETAMINOPHEN [Suspect]
     Dosage: PO
     Route: 048
  2. ACETAMINOPHEN [Suspect]
     Dosage: PO
     Route: 048
  3. ACETAMINOPHEN/HYDROCODONE [Suspect]
     Dosage: PO
     Route: 048
  4. ETHANOL [Suspect]
     Dosage: PO
     Route: 048
  5. OLANAZAPINE [Concomitant]
  6. ESCITALOPRAM [Concomitant]

REACTIONS (12)
  - ALCOHOL USE [None]
  - AMMONIA INCREASED [None]
  - BLOOD CREATINE PHOSPHOKINASE INCREASED [None]
  - BLOOD CREATINE PHOSPHOKINASE MB INCREASED [None]
  - BLOOD PH DECREASED [None]
  - COMPLETED SUICIDE [None]
  - DIALYSIS [None]
  - FEELING ABNORMAL [None]
  - HEPATIC FAILURE [None]
  - INTENTIONAL MISUSE [None]
  - INTERNATIONAL NORMALISED RATIO INCREASED [None]
  - MULTI-ORGAN FAILURE [None]
